FAERS Safety Report 6883166-3 (Version None)
Quarter: 2010Q3

REPORT INFORMATION
  Report Type: 
  Country: None (occurrence: None)
  Receive Date: 20100727
  Receipt Date: 20070527
  Transmission Date: 20110219
  Serious: Yes (Other)
  Sender: FDA-Public Use
  Company Number: US-PFIZER INC-2007042565

PATIENT
  Sex: Female
  Weight: 70.909 kg

DRUGS (4)
  1. CELEBREX [Suspect]
     Indication: ARTHRITIS
     Route: 048
     Dates: start: 20070525
  2. SYNTHROID [Concomitant]
  3. VICODIN [Concomitant]
  4. MUSCLE RELAXANTS [Concomitant]

REACTIONS (1)
  - RASH GENERALISED [None]
